FAERS Safety Report 5004952-0 (Version None)
Quarter: 2006Q1

REPORT INFORMATION
  Report Type: 
  Country: None (occurrence: None)
  Receive Date: 20060321
  Receipt Date: 20051229
  Transmission Date: 20060701
  Serious: No
  Sender: FDA-Public Use
  Company Number: YPA20060021

PATIENT
  Age: 86 Year
  Sex: Female

DRUGS (8)
  1. VESICARE [Suspect]
     Indication: URINARY INCONTINENCE
     Dosage: SEE IMAGE
     Route: 048
     Dates: start: 20051222, end: 20051227
  2. VESICARE [Suspect]
     Indication: URINARY INCONTINENCE
     Dosage: SEE IMAGE
     Route: 048
     Dates: start: 20051228
  3. PRAVACHOL [Concomitant]
  4. PRILOSEC [Concomitant]
  5. ASPIRIN [Concomitant]
  6. AMILORIDE (AMILORIDE) [Concomitant]
  7. AVAPRO [Concomitant]
  8. ZOLOFT [Concomitant]

REACTIONS (1)
  - ABDOMINAL PAIN [None]
